FAERS Safety Report 16284166 (Version 3)
Quarter: 2019Q2

REPORT INFORMATION
  Report Type: Report from Study
  Country: None (occurrence: CA)
  Receive Date: 20190507
  Receipt Date: 20190603
  Transmission Date: 20190711
  Serious: No
  Sender: FDA-Public Use
  Company Number: CA-ABBVIE-19K-028-2772397-00

PATIENT
  Age: 30 Year
  Sex: Female
  Weight: 74.91 kg

DRUGS (2)
  1. HUMIRA [Suspect]
     Active Substance: ADALIMUMAB
     Indication: CROHN^S DISEASE
     Route: 058
     Dates: start: 20190116, end: 2019
  2. HUMIRA [Suspect]
     Active Substance: ADALIMUMAB
     Route: 058
     Dates: start: 2019

REACTIONS (4)
  - Nausea [Recovered/Resolved]
  - Injection site pain [Recovering/Resolving]
  - Dizziness [Recovered/Resolved]
  - Fear of injection [Recovered/Resolved]

NARRATIVE: CASE EVENT DATE: 2019
